FAERS Safety Report 14179118 (Version 1)
Quarter: 2017Q4

REPORT INFORMATION
  Report Type: Spontaneous
  Country: IT (occurrence: IT)
  Receive Date: 20171111
  Receipt Date: 20171111
  Transmission Date: 20180321
  Serious: Yes (Other)
  Sender: FDA-Public Use
  Company Number: IT-TEVA-825567ACC

PATIENT
  Age: 60 Year
  Sex: Male

DRUGS (4)
  1. BENDAMUSTINE HYDROCHLORIDE. [Suspect]
     Active Substance: BENDAMUSTINE HYDROCHLORIDE
     Indication: DISEASE PROGRESSION
     Dosage: (2 CYCLES)
     Route: 065
     Dates: start: 201507
  2. DARATUMUMAB [Concomitant]
     Active Substance: DARATUMUMAB
     Indication: PLASMA CELL MYELOMA
     Route: 065
  3. VELCADE [Concomitant]
     Active Substance: BORTEZOMIB
     Indication: DISEASE PROGRESSION
     Dosage: (2 CYCLES)
     Route: 065
     Dates: start: 20150602, end: 20150730
  4. DEXAMETHASONE. [Concomitant]
     Active Substance: DEXAMETHASONE
     Indication: DISEASE PROGRESSION
     Dosage: (2 CYCLES)
     Route: 065
     Dates: start: 20150602, end: 20150730

REACTIONS (2)
  - Drug effect incomplete [Unknown]
  - Plasma cell myeloma [Unknown]
